FAERS Safety Report 19449952 (Version 1)
Quarter: 2021Q2

REPORT INFORMATION
  Report Type: Spontaneous
  Country: FR (occurrence: FR)
  Receive Date: 20210622
  Receipt Date: 20210622
  Transmission Date: 20210717
  Serious: Yes (Hospitalization)
  Sender: FDA-Public Use
  Company Number: FR-ALLERGAN-2123403US

PATIENT
  Sex: Male
  Weight: 110 kg

DRUGS (8)
  1. IPRATROPIUM ARROW [Suspect]
     Active Substance: IPRATROPIUM
     Indication: BRONCHOSPASM
     Dosage: UNK
     Route: 055
     Dates: start: 20210319, end: 20210425
  2. CEFTAZIDIME;AVIBACTAM ? BP [Suspect]
     Active Substance: AVIBACTAM SODIUM\CEFTAZIDIME
     Indication: PNEUMONIA
     Dosage: 2.5 G, 1X/DAY
     Route: 042
     Dates: start: 20210422, end: 20210425
  3. URAPIDIL [Concomitant]
     Active Substance: URAPIDIL
     Dosage: UNK
  4. BRICANYL [Suspect]
     Active Substance: TERBUTALINE SULFATE
     Indication: BRONCHOSPASM
     Dosage: UNK
     Route: 055
     Dates: start: 20210419, end: 20210425
  5. PANTOPRAZOLE [Concomitant]
     Active Substance: PANTOPRAZOLE
     Dosage: UNK
  6. PHOSPHONEUROS [Concomitant]
     Active Substance: CALCIUM PHOSPHATE, DIBASIC, ANHYDROUS\MAGNESIUM GLYCEROPHOSPHATE\PHOSPHORIC ACID\SODIUM PHOSPHATE, DIBASIC
     Dosage: UNK
  7. HEPARIN SODIUM N [Concomitant]
     Active Substance: HEPARIN SODIUM
     Dosage: UNK
  8. INSULIN ASPART RECOMBINANT [Concomitant]
     Active Substance: INSULIN ASPART
     Dosage: UNK

REACTIONS (2)
  - Dermatitis exfoliative generalised [Recovered/Resolved]
  - Off label use [Unknown]

NARRATIVE: CASE EVENT DATE: 20210422
